FAERS Safety Report 8464291-2 (Version None)
Quarter: 2012Q2

REPORT INFORMATION
  Report Type: 
  Country: None (occurrence: None)
  Receive Date: 20120625
  Receipt Date: 20120615
  Transmission Date: 20120825
  Serious: Yes (Hospitalization, Other)
  Sender: FDA-Public Use
  Company Number: CA-AMGEN-CANSP2012032870

PATIENT
  Age: 75 Year
  Sex: Female
  Weight: 55.5 kg

DRUGS (6)
  1. XGEVA [Suspect]
     Indication: BREAST CANCER METASTATIC
     Dosage: 120 MG, ONE TIME DOSE
     Route: 058
     Dates: start: 20120501, end: 20120501
  2. COVERSYL                           /00790702/ [Concomitant]
     Indication: HYPERTENSION
     Dosage: 8 MUG, QD
     Route: 048
  3. HYDROCHLOROTHIAZIDE [Concomitant]
     Indication: HYPERTENSION
     Dosage: 25 MUG, QD
     Route: 048
  4. AMLODIPINE [Concomitant]
     Indication: HYPERTENSION
     Dosage: 5 MUG, QD
     Route: 048
  5. L-THYROXINE                        /00068001/ [Concomitant]
     Dosage: 5 MUG, QD
     Route: 048
  6. PACLITAXEL [Concomitant]
     Indication: BREAST CANCER METASTATIC
     Dosage: UNK
     Dates: start: 20120508

REACTIONS (3)
  - ATRIAL FIBRILLATION [None]
  - HYPOCALCAEMIA [None]
  - PAIN [None]
